FAERS Safety Report 7989046-4 (Version None)
Quarter: 2011Q4

REPORT INFORMATION
  Report Type: 
  Country: None (occurrence: None)
  Receive Date: 20111215
  Receipt Date: 20111215
  Transmission Date: 20120403
  Serious: Yes (Hospitalization)
  Sender: FDA-Public Use
  Company Number: None

PATIENT
  Age: 32 Year
  Sex: Male
  Weight: 93.2 kg

DRUGS (2)
  1. RISPERIDONE [Suspect]
     Indication: SCHIZOPHRENIA, PARANOID TYPE
     Dosage: 50 MG OTHER IM   /  234 MG ONCE IM
     Route: 030
     Dates: start: 20110909, end: 20111128
  2. RISPERIDONE [Suspect]
     Indication: SCHIZOPHRENIA, PARANOID TYPE
     Dosage: 50 MG OTHER IM   /  234 MG ONCE IM
     Route: 030
     Dates: start: 20111205, end: 20111205

REACTIONS (2)
  - AGITATION [None]
  - AKATHISIA [None]
